FAERS Safety Report 24250036 (Version 4)
Quarter: 2024Q4

REPORT INFORMATION
  Report Type: Report from Study
  Country: MX (occurrence: MX)
  Receive Date: 20240826
  Receipt Date: 20241206
  Transmission Date: 20250114
  Serious: Yes (Other)
  Sender: BIOVITRUM
  Company Number: MX-AstraZeneca-2024A167215

PATIENT
  Age: 31 Day
  Sex: Female
  Weight: 4.6 kg

DRUGS (11)
  1. SYNAGIS [Suspect]
     Active Substance: PALIVIZUMAB
     Indication: Antiviral prophylaxis
     Dosage: MONTHLY 1ST DOSE
     Route: 030
     Dates: start: 20240719, end: 20240719
  2. SYNAGIS [Suspect]
     Active Substance: PALIVIZUMAB
     Dosage: MONTHLY 2ND DOSE
     Route: 030
     Dates: start: 20240819, end: 20240819
  3. SYNAGIS [Suspect]
     Active Substance: PALIVIZUMAB
     Dosage: MONTHLY (3RD DOSE)
     Dates: start: 20240917, end: 20240917
  4. SYNAGIS [Suspect]
     Active Substance: PALIVIZUMAB
     Dosage: 4TH DOSE
     Route: 030
     Dates: start: 20241016, end: 20241016
  5. TRIMEBUTINE [Concomitant]
     Active Substance: TRIMEBUTINE
     Indication: Abdominal pain
     Dosage: 0.9 MILLILITER, QD
     Dates: start: 20240803
  6. D-VI-SOL [Concomitant]
     Indication: Premature baby
     Dosage: 2GTT DROPS, QD
     Dates: start: 20240618
  7. A-C-D-VITAMIN [Concomitant]
     Indication: Premature baby
     Dosage: 6 GTT DROPS, QD
     Dates: start: 20240618
  8. FERROUS SULFATE [Concomitant]
     Active Substance: FERROUS SULFATE
     Indication: Premature baby
     Dosage: 6 GTT DROPS, QD
     Route: 048
     Dates: start: 20240618
  9. TRIDEL [Concomitant]
     Indication: Abdominal pain
     Dosage: UNK
     Dates: start: 20240718
  10. ACETAMINOPHEN\AMANTADINE\CHLORPHENIRAMINE [Concomitant]
     Active Substance: ACETAMINOPHEN\AMANTADINE\CHLORPHENIRAMINE
     Indication: Product used for unknown indication
     Dosage: 12 DROP, Q12H
  11. RIMANTADINE HYDROCHLORIDE [Concomitant]
     Active Substance: RIMANTADINE HYDROCHLORIDE
     Indication: Product used for unknown indication
     Dosage: 12 DROP, Q12H

REACTIONS (8)
  - Infantile spasms [Recovered/Resolved]
  - Irritability [Recovered/Resolved]
  - Restlessness [Recovered/Resolved]
  - Swelling face [Recovered/Resolved]
  - Crying [Recovered/Resolved]
  - Discomfort [Recovered/Resolved]
  - Malaise [Unknown]
  - Viral pharyngitis [Not Recovered/Not Resolved]

NARRATIVE: CASE EVENT DATE: 20240719
